FAERS Safety Report 5806860-1 (Version None)
Quarter: 2008Q3

REPORT INFORMATION
  Report Type: 
  Country: None (occurrence: None)
  Receive Date: 20080711
  Receipt Date: 20080630
  Transmission Date: 20090109
  Serious: Yes (Hospitalization)
  Sender: FDA-Public Use
  Company Number: FR-BRISTOL-MYERS SQUIBB COMPANY-14253207

PATIENT
  Age: 85 Year
  Sex: Female

DRUGS (14)
  1. ENDOXAN [Suspect]
     Indication: TEMPORAL ARTERITIS
     Dosage: 1DF=0.5G/M2 CYCLE 1 1ST COURSE ON 10-APR-08,CYCLE 2 ON 02-MAY-08 AND CYCLE 3 ON 09-JUN-08
     Route: 042
     Dates: start: 20080410, end: 20080609
  2. CORTANCYL [Suspect]
     Indication: TEMPORAL ARTERITIS
     Route: 048
     Dates: start: 20070601
  3. CLAFORAN [Suspect]
     Indication: INFECTION
     Route: 042
     Dates: start: 20080425, end: 20080502
  4. OFLOCET [Suspect]
     Indication: INFECTION
     Route: 042
     Dates: start: 20080425, end: 20080502
  5. BACTRIM [Suspect]
     Indication: INFECTION
     Route: 048
     Dates: start: 20080426, end: 20080505
  6. FLAGYL [Suspect]
     Indication: INFECTION
     Route: 048
     Dates: start: 20080426, end: 20080502
  7. UROMITEXAN [Concomitant]
     Dates: start: 20080410, end: 20080609
  8. AUGMENTIN '125' [Concomitant]
     Dates: start: 20080502, end: 20080508
  9. LEVOTHYROX [Concomitant]
  10. CACIT D3 [Concomitant]
  11. RULID [Concomitant]
     Dates: start: 20080502, end: 20080506
  12. RISEDRONIC ACID [Concomitant]
  13. KARDEGIC [Concomitant]
  14. NEXIUM [Concomitant]

REACTIONS (17)
  - AGRANULOCYTOSIS [None]
  - ANAEMIA [None]
  - CHILLS [None]
  - CONFUSIONAL STATE [None]
  - EYELID PTOSIS [None]
  - LEUKOPENIA [None]
  - LIVEDO RETICULARIS [None]
  - LYMPHOPENIA [None]
  - MOTOR DYSFUNCTION [None]
  - POLYURIA [None]
  - PRODUCTIVE COUGH [None]
  - PYREXIA [None]
  - RALES [None]
  - TACHYCARDIA [None]
  - TREMOR [None]
  - VISUAL IMPAIRMENT [None]
  - VOMITING [None]
